FAERS Safety Report 11101190 (Version 1)
Quarter: 2015Q2

REPORT INFORMATION
  Report Type: Report from Study
  Country: IL (occurrence: IL)
  Receive Date: 20150508
  Receipt Date: 20150508
  Transmission Date: 20150821
  Serious: Yes (Hospitalization)
  Sender: FDA-Public Use
  Company Number: IL-SA-2015SA058912

PATIENT
  Age: 64 Year
  Sex: Male

DRUGS (1)
  1. RENVELA [Suspect]
     Active Substance: SEVELAMER CARBONATE
     Indication: CHRONIC KIDNEY DISEASE
     Dosage: 2 TABLETS/3 DAY
     Route: 048

REACTIONS (1)
  - Transplant [Unknown]

NARRATIVE: CASE EVENT DATE: 20150412
